FAERS Safety Report 25206990 (Version 1)
Quarter: 2025Q2

REPORT INFORMATION
  Report Type: Spontaneous
  Country: US (occurrence: US)
  Receive Date: 20250417
  Receipt Date: 20250417
  Transmission Date: 20250716
  Serious: No
  Sender: SANDOZ
  Company Number: US-SANDOZ-SDZ2025US023789

PATIENT
  Sex: Female

DRUGS (3)
  1. DUPIXENT [Suspect]
     Active Substance: DUPILUMAB
     Indication: Dermatitis atopic
     Dosage: 2 DF, QD(1X), 300 MG/2 ML
     Route: 065
     Dates: start: 202401
  2. DUPIXENT [Suspect]
     Active Substance: DUPILUMAB
     Route: 058
     Dates: start: 2024
  3. TACROLIMUS [Suspect]
     Active Substance: TACROLIMUS
     Indication: Product used for unknown indication
     Route: 065
     Dates: end: 20240329

REACTIONS (12)
  - Skin infection [Unknown]
  - Skin disorder [Unknown]
  - Sensitive skin [Unknown]
  - Erythema [Unknown]
  - COVID-19 [Unknown]
  - Dry eye [Unknown]
  - Conjunctivitis [Unknown]
  - Dermatitis atopic [Recovering/Resolving]
  - Herpes zoster [Unknown]
  - Fatigue [Unknown]
  - Insomnia [Unknown]
  - Photosensitivity reaction [Unknown]

NARRATIVE: CASE EVENT DATE: 20240101
